FAERS Safety Report 8936304 (Version 1)
Quarter: 2012Q4

REPORT INFORMATION
  Report Type: 
  Country: US (occurrence: US)
  Receive Date: 20121130
  Receipt Date: 20121130
  Transmission Date: 20130627
  Serious: No
  Sender: FDA-Public Use
  Company Number: US-PFIZER INC-2012296645

PATIENT
  Age: 65 Year
  Sex: Male
  Weight: 199 kg

DRUGS (7)
  1. TYGACIL [Suspect]
     Indication: CELLULITIS
     Dosage: UNK
     Dates: start: 20121121
  2. ENALAPRIL [Concomitant]
     Dosage: UNK
  3. FUROSEMIDE [Concomitant]
     Dosage: UNK
  4. METOPROLOL [Concomitant]
     Dosage: UNK
  5. INSULIN ASPART [Concomitant]
     Dosage: UNK
  6. INSULIN GLARGINE [Concomitant]
     Dosage: UNK
  7. NIACIN [Concomitant]
     Dosage: UNK

REACTIONS (1)
  - Nausea [Recovered/Resolved]
